FAERS Safety Report 22116513 (Version 1)
Quarter: 2023Q1

REPORT INFORMATION
  Report Type: Spontaneous
  Country: CA (occurrence: CA)
  Receive Date: 20230320
  Receipt Date: 20230320
  Transmission Date: 20230418
  Serious: Yes (Other)
  Sender: FDA-Public Use
  Company Number: CA-MYLANLABS-2023M1029382

PATIENT
  Sex: Female

DRUGS (1)
  1. LEVONORGESTREL [Suspect]
     Active Substance: LEVONORGESTREL
     Indication: Contraception
     Dosage: 20 MICROGRAM, QD, (1 EVERY 1 DAYS)
     Route: 015

REACTIONS (5)
  - Uterine perforation [Unknown]
  - Complication of device removal [Unknown]
  - Genital haemorrhage [Unknown]
  - Abdominal pain [Unknown]
  - Incorrect route of product administration [Unknown]
